FAERS Safety Report 18729594 (Version 2)
Quarter: 2022Q1

REPORT INFORMATION
  Report Type: Spontaneous
  Country: DE (occurrence: DE)
  Receive Date: 20210112
  Receipt Date: 20220130
  Transmission Date: 20220423
  Serious: Yes (Death, Other)
  Sender: FDA-Public Use
  Company Number: DE-JAZZ-2021-DE-000217

PATIENT
  Age: 54 Year
  Sex: Female

DRUGS (1)
  1. DEFITELIO [Suspect]
     Active Substance: DEFIBROTIDE SODIUM
     Indication: Venoocclusive disease
     Dosage: UNKNOWN DOSE AND UNKNOWN FREQUENCY
     Route: 065

REACTIONS (2)
  - Death [Fatal]
  - Sepsis [Unknown]
